FAERS Safety Report 4695619-7 (Version None)
Quarter: 2005Q2

REPORT INFORMATION
  Report Type: 
  Country: None (occurrence: None)
  Receive Date: 20050608
  Receipt Date: 20050214
  Transmission Date: 20051028
  Serious: Yes (Hospitalization)
  Sender: FDA-Public Use
  Company Number: A03200500445

PATIENT
  Age: 12 Year
  Sex: Female
  Weight: 27.5 kg

DRUGS (6)
  1. ELOXATIN [Suspect]
     Indication: HEPATOBLASTOMA
     Dosage: 100 MG OTHER - INTRAVENOUS NOS
     Route: 042
     Dates: start: 20050107, end: 20050107
  2. DEXAMETHASONE [Concomitant]
  3. DIPHENHYDRAMINE HCL [Concomitant]
  4. ONDANSETRON HYDROCHLORIDE [Concomitant]
  5. RANITIDINE [Concomitant]
  6. METHYLPREDNISOLONE [Concomitant]

REACTIONS (4)
  - CHEST PAIN [None]
  - CHILLS [None]
  - PYREXIA [None]
  - VOMITING [None]
